FAERS Safety Report 7248119-4 (Version None)
Quarter: 2011Q1

REPORT INFORMATION
  Report Type: 
  Country: None (occurrence: None)
  Receive Date: 20110127
  Receipt Date: 20110121
  Transmission Date: 20110831
  Serious: Yes (Hospitalization, Other)
  Sender: FDA-Public Use
  Company Number: US-B.I. PHARMACEUTICALS,INC./RIDGEFIELD-2011-BP-01514BP

PATIENT
  Age: 55 Year
  Sex: Male

DRUGS (4)
  1. PROTONIX [Concomitant]
  2. PRADAXA [Suspect]
     Indication: ATRIAL FIBRILLATION
     Dosage: 300 MG
     Route: 048
     Dates: start: 20101222, end: 20110116
  3. ASPIRIN [Concomitant]
     Dosage: 325 MG
  4. PLAVIX [Concomitant]

REACTIONS (3)
  - EPISTAXIS [None]
  - GASTROINTESTINAL HAEMORRHAGE [None]
  - INTERNATIONAL NORMALISED RATIO INCREASED [None]
